FAERS Safety Report 8513895-7 (Version None)
Quarter: 2012Q3

REPORT INFORMATION
  Report Type: 
  Country: None (occurrence: None)
  Receive Date: 20120717
  Receipt Date: 20120705
  Transmission Date: 20120928
  Serious: Yes (Hospitalization, Other)
  Sender: FDA-Public Use
  Company Number: US-BAYER-2012-060109

PATIENT
  Age: 70 Year
  Sex: Male

DRUGS (3)
  1. NEXAVAR [Suspect]
     Dosage: 200 MG, BID
     Dates: start: 20120601, end: 20120101
  2. NEXAVAR [Suspect]
     Dosage: 400 MG, BID
  3. NEXAVAR [Suspect]
     Indication: GASTROINTESTINAL STROMAL TUMOUR
     Dosage: 2 DF, UNK
     Dates: start: 20120606

REACTIONS (5)
  - HEPATIC PAIN [None]
  - HYPERSOMNIA [None]
  - ASTHENIA [None]
  - PAINFUL RESPIRATION [None]
  - FATIGUE [None]
